FAERS Safety Report 19973581 (Version 3)
Quarter: 2021Q4

REPORT INFORMATION
  Report Type: Spontaneous
  Country: LY (occurrence: LY)
  Receive Date: 20211020
  Receipt Date: 20211207
  Transmission Date: 20220303
  Serious: Yes (Death, Other)
  Sender: FDA-Public Use
  Company Number: LY-BIOVITRUM-2021LY9299

PATIENT
  Sex: Male
  Weight: 75 kg

DRUGS (1)
  1. ORFADIN [Suspect]
     Active Substance: NITISINONE
     Indication: Tyrosinaemia
     Dosage: SEVERAL YEARS
     Route: 065

REACTIONS (2)
  - Hepatic failure [Fatal]
  - Hepatocellular carcinoma [Fatal]
